FAERS Safety Report 24377533 (Version 2)
Quarter: 2024Q4

REPORT INFORMATION
  Report Type: Spontaneous
  Country: US (occurrence: US)
  Receive Date: 20240930
  Receipt Date: 20241004
  Transmission Date: 20250114
  Serious: No
  Sender: AMGEN
  Company Number: US-AMGEN-USASP2024193552

PATIENT
  Age: 2 Year
  Sex: Female

DRUGS (2)
  1. PROCYSBI [Suspect]
     Active Substance: CYSTEAMINE BITARTRATE
     Indication: Cystinosis
     Dosage: 375 MILLIGRAM, BID ((TAKE THREE 75 MG PACKETS (225 MG) VIA G-TUBE IN THE MORNING AND TAKE TWO 75 MG
  2. PROCYSBI [Suspect]
     Active Substance: CYSTEAMINE BITARTRATE
     Dosage: 225 MILLIGRAM, BID

REACTIONS (1)
  - Ear infection [Unknown]
